FAERS Safety Report 8142701-8 (Version None)
Quarter: 2012Q1

REPORT INFORMATION
  Report Type: 
  Country: None (occurrence: None)
  Receive Date: 20120216
  Receipt Date: 20120214
  Transmission Date: 20120608
  Serious: Yes (Other)
  Sender: FDA-Public Use
  Company Number: JP-PFIZER INC-2012013495

PATIENT
  Age: 78 Year
  Sex: Female

DRUGS (1)
  1. LYRICA [Suspect]
     Indication: SCIATICA
     Dosage: 25 MG DAILY
     Route: 048
     Dates: start: 20111201

REACTIONS (2)
  - SPINAL OSTEOARTHRITIS [None]
  - FACE OEDEMA [None]
